FAERS Safety Report 15714232 (Version 1)
Quarter: 2018Q4

REPORT INFORMATION
  Report Type: Spontaneous
  Country: IT (occurrence: IT)
  Receive Date: 20181212
  Receipt Date: 20181212
  Transmission Date: 20190205
  Serious: Yes (Other)
  Sender: FDA-Public Use
  Company Number: IT-CELGENEUS-ITA-20181200411

PATIENT
  Age: 56 Year
  Sex: Female
  Weight: 87 kg

DRUGS (3)
  1. ABRAXANE [Suspect]
     Active Substance: PACLITAXEL
     Route: 042
     Dates: start: 20050712, end: 20051206
  2. ABRAXANE [Suspect]
     Active Substance: PACLITAXEL
     Indication: METAPLASTIC BREAST CARCINOMA
     Route: 042
     Dates: start: 20180925, end: 20181106
  3. ABRAXANE [Suspect]
     Active Substance: PACLITAXEL
     Route: 042
     Dates: start: 201303, end: 201312

REACTIONS (2)
  - Paraesthesia [Unknown]
  - Neuromuscular toxicity [Unknown]

NARRATIVE: CASE EVENT DATE: 20181127
